FAERS Safety Report 8167021-7 (Version None)
Quarter: 2012Q1

REPORT INFORMATION
  Report Type: 
  Country: None (occurrence: None)
  Receive Date: 20120227
  Receipt Date: 20120221
  Transmission Date: 20120608
  Serious: Yes (Other)
  Sender: FDA-Public Use
  Company Number: FR-ABBOTT-12P-056-0905469-00

PATIENT
  Age: 44 Year
  Sex: Male

DRUGS (2)
  1. HUMIRA [Suspect]
     Indication: PRODUCT USED FOR UNKNOWN INDICATION
     Dosage: 80 MG LOADING DOSE
     Route: 058
  2. CORTICOIDS (NOS) [Concomitant]
     Indication: CROHN'S DISEASE

REACTIONS (3)
  - INTESTINAL PERFORATION [None]
  - INFECTIOUS PERITONITIS [None]
  - INTESTINAL OBSTRUCTION [None]
